FAERS Safety Report 14100943 (Version 2)
Quarter: 2017Q4

REPORT INFORMATION
  Report Type: Spontaneous
  Country: JP (occurrence: JP)
  Receive Date: 20171018
  Receipt Date: 20171122
  Transmission Date: 20180321
  Serious: Yes (Other)
  Sender: FDA-Public Use
  Company Number: JP-009507513-1710JPN001403J

PATIENT
  Age: 68 Year
  Sex: Male
  Weight: 73 kg

DRUGS (7)
  1. ESLAX INTRAVENOUS 25MG/2.5ML [Suspect]
     Active Substance: ROCURONIUM BROMIDE
     Indication: NEUROMUSCULAR BLOCKING THERAPY
     Dosage: UNK
     Route: 042
  2. PROPOFOL. [Concomitant]
     Active Substance: PROPOFOL
     Indication: INDUCTION AND MAINTENANCE OF ANAESTHESIA
     Dosage: UNK
     Route: 042
  3. BRIDION [Concomitant]
     Active Substance: SUGAMMADEX
     Indication: NEUROMUSCULAR BLOCKADE REVERSAL
     Dosage: 200 MG, UNK
     Route: 042
  4. BRIDION [Concomitant]
     Active Substance: SUGAMMADEX
     Dosage: 200 MG, UNK
     Route: 042
  5. FENTANYL. [Concomitant]
     Active Substance: FENTANYL
     Indication: INDUCTION AND MAINTENANCE OF ANAESTHESIA
     Dosage: UNK
     Route: 042
  6. ESLAX INTRAVENOUS 25MG/2.5ML [Suspect]
     Active Substance: ROCURONIUM BROMIDE
     Dosage: 7 MCG/KG/HOUR
     Route: 042
  7. REMIFENTANIL HYDROCHLORIDE. [Concomitant]
     Active Substance: REMIFENTANIL HYDROCHLORIDE
     Indication: INDUCTION AND MAINTENANCE OF ANAESTHESIA
     Dosage: UNK
     Route: 042

REACTIONS (1)
  - Upper airway obstruction [Recovered/Resolved]
